FAERS Safety Report 9867778 (Version 2)
Quarter: 2014Q1

REPORT INFORMATION
  Report Type: Spontaneous
  Country: US (occurrence: US)
  Receive Date: 20140204
  Receipt Date: 20140204
  Transmission Date: 20141002
  Serious: No
  Sender: FDA-Public Use
  Company Number: US-TEVA-141133USA

PATIENT
  Age: 29 Year
  Sex: Female

DRUGS (2)
  1. COPAXONE [Suspect]
     Indication: MULTIPLE SCLEROSIS
     Dosage: 20 MILLIGRAM DAILY;
     Route: 058
     Dates: start: 20040715, end: 20041217
  2. COPAXONE [Suspect]
     Route: 058
     Dates: start: 200508

REACTIONS (1)
  - Normal newborn [Unknown]
